FAERS Safety Report 4621869-1 (Version None)
Quarter: 2005Q1

REPORT INFORMATION
  Report Type: 
  Country: None (occurrence: None)
  Receive Date: 20050329
  Receipt Date: 20050317
  Transmission Date: 20050727
  Serious: Yes (Hospitalization)
  Sender: FDA-Public Use
  Company Number: TH-BRISTOL-MYERS SQUIBB COMPANY-12910766

PATIENT

DRUGS (1)
  1. EFAVIRENZ TABS [Suspect]
     Indication: HIV INFECTION
     Dosage: THERAPY WAS INTERRUPTED DUE TO THE EVENTS.
     Route: 048

REACTIONS (3)
  - PYREXIA [None]
  - RASH [None]
  - SERUM SICKNESS [None]
